FAERS Safety Report 11069841 (Version 1)
Quarter: 2015Q2

REPORT INFORMATION
  Report Type: Spontaneous
  Country: US (occurrence: US)
  Receive Date: 20150427
  Receipt Date: 20150427
  Transmission Date: 20150821
  Serious: No
  Sender: FDA-Public Use
  Company Number: US-ASTRAZENECA-2015SE36404

PATIENT
  Age: 555 Month
  Sex: Male
  Weight: 103.4 kg

DRUGS (10)
  1. SYMBICORT [Suspect]
     Active Substance: BUDESONIDE\FORMOTEROL FUMARATE DIHYDRATE
     Indication: CHRONIC OBSTRUCTIVE PULMONARY DISEASE
     Dosage: 80 4.5 MCG 2 PUFFS BID
     Route: 055
     Dates: start: 20150320
  2. ATENOLOL. [Concomitant]
     Active Substance: ATENOLOL
     Route: 048
  3. CYMBALTA [Concomitant]
     Active Substance: DULOXETINE HYDROCHLORIDE
  4. NORVASC [Concomitant]
     Active Substance: AMLODIPINE BESYLATE
     Indication: BLOOD PRESSURE ABNORMAL
  5. BUSAPAR [Concomitant]
  6. ALBUTEROL. [Concomitant]
     Active Substance: ALBUTEROL
     Indication: ADVERSE EVENT
     Route: 055
  7. GABAPENTIN. [Concomitant]
     Active Substance: GABAPENTIN
     Indication: NEURALGIA
  8. PREDNISONE. [Concomitant]
     Active Substance: PREDNISONE
     Route: 048
  9. BABY ASPIRIN [Concomitant]
     Active Substance: ASPIRIN
  10. MONODOX [Concomitant]
     Active Substance: DOXYCYCLINE

REACTIONS (3)
  - Drug dose omission [Unknown]
  - Chronic obstructive pulmonary disease [Not Recovered/Not Resolved]
  - Off label use [Unknown]

NARRATIVE: CASE EVENT DATE: 201503
